FAERS Safety Report 19904131 (Version 3)
Quarter: 2022Q1

REPORT INFORMATION
  Report Type: Spontaneous
  Country: JP (occurrence: JP)
  Receive Date: 20211001
  Receipt Date: 20220120
  Transmission Date: 20220423
  Serious: Yes (Hospitalization, Other)
  Sender: FDA-Public Use
  Company Number: JP-ASTELLAS-2021JP018747

PATIENT
  Age: 80 Year
  Sex: Female

DRUGS (1)
  1. PROGRAF [Suspect]
     Active Substance: TACROLIMUS
     Indication: Rheumatoid arthritis
     Dosage: 3 MG/DAY, UNKNOWN FREQ.
     Route: 048
     Dates: start: 20201103

REACTIONS (3)
  - Skin necrosis [Recovered/Resolved]
  - Postoperative wound complication [Recovered/Resolved]
  - Skin exfoliation [Recovered/Resolved]
